FAERS Safety Report 15095203 (Version 1)
Quarter: 2018Q3

REPORT INFORMATION
  Report Type: Spontaneous
  Country: US (occurrence: US)
  Receive Date: 20180702
  Receipt Date: 20180702
  Transmission Date: 20181010
  Serious: No
  Sender: FDA-Public Use
  Company Number: US-GLENMARK PHARMACEUTICALS-2018GMK031334

PATIENT

DRUGS (4)
  1. MUPIROCIN. [Suspect]
     Active Substance: MUPIROCIN
     Indication: CHAPPED LIPS
     Dosage: UNK, ON HER LIPS
     Route: 050
     Dates: start: 201711
  2. MUPIROCIN. [Suspect]
     Active Substance: MUPIROCIN
     Indication: LIP DRY
  3. MUPIROCIN. [Suspect]
     Active Substance: MUPIROCIN
     Indication: LIP BLISTER
  4. ABREVA [Concomitant]
     Active Substance: DOCOSANOL
     Indication: LIP BLISTER
     Dosage: UNK
     Route: 065

REACTIONS (2)
  - Drug effective for unapproved indication [Unknown]
  - Wrong technique in product usage process [Unknown]
